FAERS Safety Report 7508819-5 (Version None)
Quarter: 2011Q2

REPORT INFORMATION
  Report Type: 
  Country: None (occurrence: None)
  Receive Date: 20110527
  Receipt Date: 20081020
  Transmission Date: 20111010
  Serious: Yes (Other)
  Sender: FDA-Public Use
  Company Number: US-BAYER-200836327NA

PATIENT
  Age: 68 Year
  Sex: Male
  Weight: 97.506 kg

DRUGS (17)
  1. TRASYLOL [Suspect]
     Indication: ECHOCARDIOGRAM
  2. NORVASC [Concomitant]
     Dosage: 5MG EVERY OTHER DAY
     Route: 048
  3. HEPARIN [Concomitant]
     Dosage: 32,000 UNITS
     Route: 042
     Dates: start: 20070108, end: 20070108
  4. TRASYLOL [Suspect]
     Indication: INTRA-AORTIC BALLOON PLACEMENT
  5. MONOPRIL [Concomitant]
     Dosage: 40MG EVERY OTHER DAY
     Route: 048
  6. HYDROCHLOROTHIAZIDE [Concomitant]
     Dosage: 50 UNK, UNK
     Route: 048
  7. FENTANYL [Concomitant]
     Dosage: 20MG
     Route: 042
     Dates: start: 20070108, end: 20070108
  8. MANNITOL [Concomitant]
     Dosage: UNK
     Dates: start: 20070108, end: 20070108
  9. TRASYLOL [Suspect]
     Indication: AORTIC VALVE REPLACEMENT
     Dosage: TEST DOSE - PUMP PRIME DOSE 200ML PER PERFUSION RECORD RECORD.  LOADING DOSE: 1ML
     Dates: start: 20070108, end: 20070108
  10. ZETIA [Concomitant]
     Dosage: 10 MG, QD
     Route: 048
  11. PLATELETS [Concomitant]
  12. ZOCOR [Concomitant]
     Dosage: 40 MG, QD
     Route: 048
  13. RED BLOOD CELLS, CONCENTRATED [Concomitant]
  14. FRESH FROZEN PLASMA [Concomitant]
  15. ACETYLSALICYLIC ACID SRT [Concomitant]
     Dosage: 325 MG, QD
     Route: 048
  16. AVAPRO [Concomitant]
     Dosage: 150MG EVERY OTHER DAY
     Route: 048
  17. NITROGLYCERIN [Concomitant]

REACTIONS (14)
  - RENAL INJURY [None]
  - PAIN [None]
  - ANHEDONIA [None]
  - RENAL IMPAIRMENT [None]
  - PERIPHERAL NERVE INJURY [None]
  - STRESS [None]
  - FEAR [None]
  - EMOTIONAL DISTRESS [None]
  - CARDIAC FAILURE CONGESTIVE [None]
  - MULTI-ORGAN FAILURE [None]
  - RENAL FAILURE [None]
  - UNEVALUABLE EVENT [None]
  - INJURY [None]
  - ANXIETY [None]
